FAERS Safety Report 7842876-1 (Version None)
Quarter: 2011Q4

REPORT INFORMATION
  Report Type: 
  Country: None (occurrence: None)
  Receive Date: 20111025
  Receipt Date: 20111020
  Transmission Date: 20120403
  Serious: Yes (Other)
  Sender: FDA-Public Use
  Company Number: ES-PFIZER INC-2011253366

PATIENT
  Age: 61 Year
  Sex: Female

DRUGS (6)
  1. DRONEDARONE HCL [Interacting]
     Dosage: 400 MG, 2X/DAY
     Route: 048
     Dates: start: 20101108, end: 20110516
  2. DIGOXIN [Interacting]
     Dosage: 0.25 MG, 1X/DAY
     Route: 048
     Dates: start: 20091113
  3. FUROSEMIDE [Suspect]
     Dosage: 40 MG, 2X/DAY
     Route: 048
     Dates: start: 20100319
  4. BISOPROLOL FUMARATE [Interacting]
     Dosage: 5 MG, 1X/DAY
     Route: 048
     Dates: start: 20110408
  5. ALDACTONE [Suspect]
     Dosage: 25 MG, 1X/DAY
     Route: 048
     Dates: start: 20100319
  6. LEVOTHYROXINE SODIUM [Suspect]
     Dosage: 100 UG, 1X/DAY
     Route: 048
     Dates: start: 20110325

REACTIONS (5)
  - DRUG LEVEL INCREASED [None]
  - FATIGUE [None]
  - DRUG INTERACTION [None]
  - ELECTROCARDIOGRAM ST SEGMENT ABNORMAL [None]
  - PALPITATIONS [None]
